FAERS Safety Report 4772783-2 (Version None)
Quarter: 2005Q3

REPORT INFORMATION
  Report Type: 
  Country: None (occurrence: None)
  Receive Date: 20050919
  Receipt Date: 20050801
  Transmission Date: 20060218
  Serious: Yes (Other)
  Sender: FDA-Public Use
  Company Number: DE-GLAXOSMITHKLINE-D0047203A

PATIENT
  Age: 46 Year
  Sex: Male
  Weight: 81 kg

DRUGS (4)
  1. ZOFRAN [Suspect]
     Dosage: 8MG UNKNOWN
     Route: 048
  2. OXALIPLATIN [Suspect]
     Route: 042
  3. XELODA [Suspect]
     Route: 048
  4. KEVATRIL [Suspect]
     Route: 042

REACTIONS (2)
  - HEPATIC ENZYME INCREASED [None]
  - PANCREATIC ENZYMES INCREASED [None]
